FAERS Safety Report 9791783 (Version 1)
Quarter: 2014Q1

REPORT INFORMATION
  Report Type: Spontaneous
  Country: JP (occurrence: JP)
  Receive Date: 20140102
  Receipt Date: 20140102
  Transmission Date: 20141002
  Serious: Yes (Hospitalization, Other)
  Sender: FDA-Public Use
  Company Number: JP-009507513-1312JPN011933

PATIENT
  Sex: Male

DRUGS (5)
  1. JANUVIA TABLETS 50MG [Suspect]
     Dosage: 50MG ONCE A DAY
     Dates: start: 20131220
  2. JANUVIA TABLETS 50MG [Suspect]
     Dosage: UNK
     Route: 048
  3. INSULIN [Concomitant]
     Dosage: DAILY DOSE UNKNOWN
     Route: 051
  4. NESINA [Concomitant]
     Dosage: DAILY DOSAGE UNKNOWN
     Route: 048
  5. MELBIN [Concomitant]
     Dosage: DAILY DOSAGE UNKNOWN

REACTIONS (6)
  - Pancreaticoduodenectomy [Unknown]
  - Weight decreased [Not Recovered/Not Resolved]
  - Weight increased [Unknown]
  - Erectile dysfunction [Recovered/Resolved]
  - Flatulence [Unknown]
  - Diarrhoea [Recovering/Resolving]
